FAERS Safety Report 4846978-3 (Version None)
Quarter: 2005Q4

REPORT INFORMATION
  Report Type: 
  Country: None (occurrence: None)
  Receive Date: 20051207
  Receipt Date: 20051129
  Transmission Date: 20060501
  Serious: Yes (Hospitalization)
  Sender: FDA-Public Use
  Company Number: BR-JNJFOC-20051200314

PATIENT
  Age: 24 Year
  Sex: Female
  Weight: 53 kg

DRUGS (18)
  1. DURAGESIC-100 [Suspect]
     Route: 062
  2. CARBAMAZEPINE [Concomitant]
     Indication: PAIN
  3. OMEPRAZOLE [Concomitant]
     Indication: GASTRITIS
  4. AMPLICTIL [Concomitant]
     Indication: NAUSEA
  5. AMPLICTIL [Concomitant]
     Indication: PAIN
  6. COMPLEX B [Concomitant]
  7. COMPLEX B [Concomitant]
  8. COMPLEX B [Concomitant]
  9. COMPLEX B [Concomitant]
  10. DEPAKOTE [Concomitant]
     Indication: MIGRAINE
  11. DIMORF [Concomitant]
     Indication: PAIN
  12. DRAMIN B6 [Concomitant]
     Indication: NAUSEA
  13. RIVOTRIL [Concomitant]
     Indication: INSOMNIA
  14. DEFEROXAMINE [Concomitant]
  15. GABAPENTIN [Concomitant]
     Indication: PAIN
  16. NARATRIPTAN [Concomitant]
     Indication: MIGRAINE
  17. STILNOX [Concomitant]
     Indication: INSOMNIA
  18. FOLIC ACID [Concomitant]

REACTIONS (3)
  - DRUG INEFFECTIVE [None]
  - KERATITIS HERPETIC [None]
  - PAIN [None]
